FAERS Safety Report 22113882 (Version 1)
Quarter: 2023Q1

REPORT INFORMATION
  Report Type: Spontaneous
  Country: US (occurrence: US)
  Receive Date: 20230320
  Receipt Date: 20230320
  Transmission Date: 20230418
  Serious: No
  Sender: FDA-Public Use
  Company Number: US-AUROBINDO-AUR-APL-2022-025309

PATIENT
  Age: 3 Year
  Sex: Male
  Weight: 13 kg

DRUGS (1)
  1. CEFPROZIL [Suspect]
     Active Substance: CEFPROZIL
     Indication: Pharyngitis
     Dosage: 4.5 MILLILITER
     Route: 048
     Dates: start: 20220630, end: 20220630

REACTIONS (3)
  - Burning sensation [Not Recovered/Not Resolved]
  - Product use complaint [Unknown]
  - Product taste abnormal [Unknown]

NARRATIVE: CASE EVENT DATE: 20220630
